FAERS Safety Report 6436721-9 (Version None)
Quarter: 2009Q4

REPORT INFORMATION
  Report Type: 
  Country: None (occurrence: None)
  Receive Date: 20091103
  Receipt Date: 20091016
  Transmission Date: 20100525
  Serious: Yes (Other)
  Sender: FDA-Public Use
  Company Number: GAM-151-09-AU

PATIENT
  Age: 56 Year
  Sex: Male
  Weight: 83 kg

DRUGS (1)
  1. OCTAGAM [Suspect]
     Indication: KIDNEY TRANSPLANT REJECTION
     Dosage: 80 G I.V.
     Route: 042
     Dates: start: 20081031, end: 20081031

REACTIONS (2)
  - ARTERIOVENOUS FISTULA THROMBOSIS [None]
  - KIDNEY TRANSPLANT REJECTION [None]
